FAERS Safety Report 19738524 (Version 5)
Quarter: 2024Q2

REPORT INFORMATION
  Report Type: Report from Study
  Country: MX (occurrence: MX)
  Receive Date: 20210823
  Receipt Date: 20240415
  Transmission Date: 20240715
  Serious: Yes (Hospitalization)
  Sender: FDA-Public Use
  Company Number: MX-TAKEDA-2021TUS052253

PATIENT
  Age: 11 Year
  Sex: Male
  Weight: 17 kg

DRUGS (5)
  1. IDURSULFASE [Suspect]
     Active Substance: IDURSULFASE
     Indication: Mucopolysaccharidosis II
     Dosage: 2 DOSAGE FORM, 1/WEEK
     Route: 042
     Dates: start: 20210714
  2. IDURSULFASE [Suspect]
     Active Substance: IDURSULFASE
     Dosage: UNK
     Route: 042
  3. ZINC GLUCONATE [Concomitant]
     Active Substance: ZINC GLUCONATE
     Dosage: 30 MILLIGRAM, QD
     Route: 065
  4. ACETAMINOPHEN [Concomitant]
     Active Substance: ACETAMINOPHEN
     Dosage: 250 MILLIGRAM, Q8HR
     Route: 065
  5. SENOSIDOS AB [Concomitant]
     Dosage: 1 DOSAGE FORM, QD
     Route: 065

REACTIONS (4)
  - Central venous catheterisation [Recovering/Resolving]
  - Respiratory disorder [Recovered/Resolved]
  - Inappropriate schedule of product administration [Recovering/Resolving]
  - Product dose omission issue [Recovering/Resolving]

NARRATIVE: CASE EVENT DATE: 20210814
